FAERS Safety Report 24803569 (Version 2)
Quarter: 2025Q1

REPORT INFORMATION
  Report Type: Spontaneous
  Country: CZ (occurrence: CZ)
  Receive Date: 20250103
  Receipt Date: 20250106
  Transmission Date: 20250409
  Serious: Yes (Life-Threatening, Hospitalization, Other)
  Sender: MERCK
  Company Number: None

PATIENT
  Age: 66 Year
  Sex: Female
  Weight: 54 kg

DRUGS (8)
  1. KEYTRUDA [Suspect]
     Active Substance: PEMBROLIZUMAB
     Indication: Breast cancer
     Dosage: FLAT DOSE 200 MG EVERY 21 DAYS, 2 CYCLES ADMINISTERED, CONCOMITANTLY ADMINISTERED WITH PACLITAXEL, L
     Route: 042
     Dates: start: 20241003, end: 20241212
  2. CONTROLOC [Concomitant]
     Active Substance: PANTOPRAZOLE SODIUM
     Dosage: 1-0-0
     Route: 048
  3. PACLITAXEL [Concomitant]
     Active Substance: PACLITAXEL
     Indication: Breast cancer
     Dosage: 9 CYCLES TO THE DATE OF REPORTING, CONCOMITANT APPLICATION WITH KEYTRUDA SINCE 3.10.2024, LAST APPLI
     Dates: start: 20241003, end: 20241212
  4. DUPHALAC [Concomitant]
     Active Substance: LACTULOSE
     Indication: Constipation
     Dosage: WHEN CONSTIPATED; STRENGTH: 66.5%/ML
     Route: 048
  5. METOCLOPRAMIDE HYDROCHLORIDE [Concomitant]
     Active Substance: METOCLOPRAMIDE HYDROCHLORIDE
     Indication: Nausea
  6. METOCLOPRAMIDE HYDROCHLORIDE [Concomitant]
     Active Substance: METOCLOPRAMIDE HYDROCHLORIDE
     Indication: Vomiting
  7. FENTALIS [FENTANYL] [Concomitant]
  8. METAMIZOLE [Concomitant]
     Active Substance: METAMIZOLE
     Dosage: 1 - 0 - 1
     Route: 048

REACTIONS (2)
  - Immune-mediated adverse reaction [Recovering/Resolving]
  - Liver disorder [Recovering/Resolving]

NARRATIVE: CASE EVENT DATE: 20241030
